FAERS Safety Report 22224156 (Version 1)
Quarter: 2023Q2

REPORT INFORMATION
  Report Type: Other
  Country: US (occurrence: US)
  Receive Date: 20230418
  Receipt Date: 20230418
  Transmission Date: 20230721
  Serious: No
  Sender: FDA-Public Use
  Company Number: US-UROVANT SCIENCES GMBH-202302-URV-000285

PATIENT
  Sex: Male

DRUGS (2)
  1. GEMTESA [Suspect]
     Active Substance: VIBEGRON
     Indication: Hypertonic bladder
     Dosage: 75 MG, QD
     Route: 048
     Dates: start: 202302, end: 20230222
  2. FESOTERODINE FUMARATE [Suspect]
     Active Substance: FESOTERODINE FUMARATE
     Indication: Hypertonic bladder
     Dosage: 8 MG
     Dates: end: 20230221

REACTIONS (1)
  - Hypertension [Unknown]
